FAERS Safety Report 4821854-0 (Version None)
Quarter: 2005Q4

REPORT INFORMATION
  Report Type: 
  Country: None (occurrence: None)
  Receive Date: 20051102
  Receipt Date: 20051019
  Transmission Date: 20060501
  Serious: Yes (Other)
  Sender: FDA-Public Use
  Company Number: FR_040904705

PATIENT
  Age: 67 Year
  Sex: Male
  Weight: 72 kg

DRUGS (2)
  1. CIALIS [Suspect]
     Indication: ERECTILE DYSFUNCTION
     Dosage: 10 MG/3 OTHER
     Route: 050
     Dates: start: 20031223, end: 20050801
  2. ASPEGIC 325 [Concomitant]

REACTIONS (8)
  - BUNDLE BRANCH BLOCK [None]
  - CARDIAC MURMUR [None]
  - CHEST DISCOMFORT [None]
  - FATIGUE [None]
  - HEADACHE [None]
  - MALAISE [None]
  - TACHYCARDIA [None]
  - VEIN DISORDER [None]
